FAERS Safety Report 7599261-X (Version None)
Quarter: 2011Q3

REPORT INFORMATION
  Report Type: 
  Country: None (occurrence: None)
  Receive Date: 20110711
  Receipt Date: 20090316
  Transmission Date: 20111222
  Serious: Yes (Other)
  Sender: FDA-Public Use
  Company Number: US-BAYER-200915596NA

PATIENT
  Age: 83 Year
  Sex: Female
  Weight: 53 kg

DRUGS (23)
  1. TRASYLOL [Suspect]
     Indication: CORONARY ARTERY BYPASS
     Dosage: 200 ML LOADING DOSE
     Route: 042
     Dates: start: 20040114, end: 20040114
  2. HEPARIN [Concomitant]
     Dosage: UNK
     Route: 042
     Dates: start: 20040114
  3. LASIX [Concomitant]
     Dosage: UNK
     Route: 042
     Dates: start: 20040106
  4. FRESH FROZEN PLASMA [Concomitant]
     Dosage: 6 U, UNK
     Route: 042
     Dates: start: 20040114
  5. PROTAMINE SULFATE [Concomitant]
     Dosage: UNK
     Route: 042
     Dates: start: 20040114, end: 20040114
  6. TRASYLOL [Suspect]
     Dosage: 50 ML/HR
     Route: 042
     Dates: start: 20040114, end: 20040114
  7. HYDROCHLOROTHIAZIDE [Concomitant]
     Dosage: 25 MG, QD
     Route: 048
  8. ACETYLSALICYLIC ACID SRT [Concomitant]
     Dosage: UNK
     Route: 048
     Dates: start: 20040106
  9. VERSED [Concomitant]
     Dosage: UNK
     Route: 042
     Dates: start: 20040114, end: 20040114
  10. PLATELETS [Concomitant]
     Dosage: 2-6 U
     Route: 042
     Dates: start: 20040114
  11. ALLOPURINOL [Concomitant]
     Dosage: 100 MG, QD
     Route: 048
  12. ATENOLOL [Concomitant]
     Dosage: 50 MG, QD
     Route: 048
  13. INTEGRILIN [Concomitant]
     Dosage: UNK
     Route: 042
     Dates: start: 20040106
  14. VERSED [Concomitant]
     Dosage: UNK
     Route: 042
     Dates: start: 20040106
  15. RED BLOOD CELLS [Concomitant]
     Dosage: 3 U, UNK
     Route: 042
     Dates: start: 20040114
  16. TRASYLOL [Suspect]
     Indication: AORTIC VALVE REPLACEMENT
     Dosage: 200 ML PUMP PRIME
     Dates: start: 20040114, end: 20040114
  17. COLCHICINE [Concomitant]
     Dosage: 0.6 MG, QD
     Route: 048
  18. HEPARIN [Concomitant]
     Dosage: UNK
     Route: 042
     Dates: start: 20040106, end: 20040106
  19. FENTANYL [Concomitant]
     Dosage: UNK
     Route: 042
     Dates: start: 20040114, end: 20040114
  20. KEFZOL [Concomitant]
     Dosage: UNK
     Route: 042
     Dates: start: 20040114
  21. CONTRAST MEDIA [Concomitant]
     Indication: CATHETERISATION CARDIAC
     Dosage: UNK
     Dates: start: 20040105
  22. MORPHINE [Concomitant]
     Dosage: UNK
     Route: 042
     Dates: start: 20040106
  23. FENTANYL [Concomitant]
     Dosage: UNK
     Dates: start: 20040106, end: 20040106

REACTIONS (8)
  - ANHEDONIA [None]
  - INJURY [None]
  - FEAR [None]
  - RENAL FAILURE [None]
  - ANXIETY [None]
  - PAIN [None]
  - DEPRESSION [None]
  - ADVERSE EVENT [None]
